FAERS Safety Report 15704767 (Version 1)
Quarter: 2018Q4

REPORT INFORMATION
  Report Type: Report from Study
  Country: ES (occurrence: ES)
  Receive Date: 20181210
  Receipt Date: 20181210
  Transmission Date: 20190205
  Serious: Yes (Death, Life-Threatening, Hospitalization)
  Sender: FDA-Public Use
  Company Number: ES-PFIZER INC-2018505709

PATIENT
  Age: 7 Year
  Sex: Female
  Weight: 36.3 kg

DRUGS (12)
  1. METHOTREXATE. [Suspect]
     Active Substance: METHOTREXATE
     Indication: ACUTE LYMPHOCYTIC LEUKAEMIA
     Dosage: UNK
     Route: 042
     Dates: start: 20180223, end: 20180224
  2. ACICLOVIR [ACICLOVIR SODIUM] [Concomitant]
     Indication: PROPHYLAXIS
     Dosage: 280 MG, 3X/DAY
     Route: 048
     Dates: start: 20180205, end: 20180222
  3. HYDROCORTISONE. [Concomitant]
     Active Substance: HYDROCORTISONE
     Indication: PROPHYLAXIS
     Dosage: 4 MG, 3X/DAY
     Route: 048
     Dates: start: 20180205, end: 20180223
  4. PIPERACILLIN AND TAZOBACTAM [Concomitant]
     Active Substance: PIPERACILLIN SODIUM\TAZOBACTAM SODIUM
     Dosage: 3000 MG, 4X/DAY
     Route: 042
     Dates: start: 20180207, end: 20180218
  5. MERCAPTOPURINE. [Suspect]
     Active Substance: MERCAPTOPURINE
     Indication: ACUTE LYMPHOCYTIC LEUKAEMIA
     Dosage: 32 MG, 1X/DAY
     Route: 048
     Dates: start: 20180223, end: 20180226
  6. VINCRISTINE SULFATE. [Suspect]
     Active Substance: VINCRISTINE SULFATE
     Indication: ACUTE LYMPHOCYTIC LEUKAEMIA
     Dosage: 1.7 MG, 1X/DAY
     Route: 042
     Dates: start: 20180223, end: 20180223
  7. AMBISOME [Concomitant]
     Active Substance: AMPHOTERICIN B
     Dosage: 110 MG, 1X/DAY
     Route: 042
     Dates: start: 20180205, end: 20180222
  8. RANITIDINE. [Concomitant]
     Active Substance: RANITIDINE
     Indication: PROPHYLAXIS
     Dosage: 35 MG, 3X/DAY
     Route: 042
     Dates: start: 20180223, end: 20180223
  9. VANCOMYCIN HYDROCHLORIDE. [Concomitant]
     Active Substance: VANCOMYCIN HYDROCHLORIDE
     Dosage: 350 MG, 4X/DAY
     Route: 042
     Dates: start: 20180218, end: 20180221
  10. DEXAMETHASONE. [Suspect]
     Active Substance: DEXAMETHASONE
     Indication: ACUTE LYMPHOCYTIC LEUKAEMIA
     Dosage: 11 MG, 2X/DAY
     Route: 042
     Dates: start: 20180223, end: 20180301
  11. MEROPENEM. [Concomitant]
     Active Substance: MEROPENEM
     Dosage: 1400 MG, 3X/DAY
     Route: 042
     Dates: start: 20180218, end: 20180223
  12. SEPTRIN [Concomitant]
     Active Substance: SULFAMETHOXAZOLE\TRIMETHOPRIM
     Indication: PROPHYLAXIS
     Dosage: 1 DF, 2X/DAY
     Route: 048
     Dates: start: 20180205, end: 20180222

REACTIONS (1)
  - Stomatitis [Recovering/Resolving]

NARRATIVE: CASE EVENT DATE: 20180301
